FAERS Safety Report 9685095 (Version 3)
Quarter: 2013Q4

REPORT INFORMATION
  Report Type: Spontaneous
  Country: TW (occurrence: TW)
  Receive Date: 20131113
  Receipt Date: 20131206
  Transmission Date: 20140711
  Serious: Yes (Other)
  Sender: FDA-Public Use
  Company Number: TW-RANBAXY-2013RR-75164

PATIENT
  Age: 58 Year
  Sex: Male

DRUGS (16)
  1. CLARICIN F.C. [Suspect]
     Indication: BRUCELLOSIS
     Dosage: UNK
     Route: 048
  2. PROGRAF [Interacting]
     Indication: IMMUNOSUPPRESSANT DRUG THERAPY
     Dosage: 1.5 MG
     Route: 048
  3. TIGECYCLINE [Concomitant]
     Indication: BACTERIAL INFECTION
     Dosage: UNK
     Route: 042
  4. MINOCYCLINE [Concomitant]
     Indication: BRUCELLOSIS
     Dosage: UNK
     Route: 065
  5. LEVOFLOXACIN [Concomitant]
     Indication: BACTERIAL INFECTION
     Dosage: UNK
     Route: 065
  6. MYCOPHENOLATE SODIUM [Concomitant]
     Indication: IMMUNOSUPPRESSANT DRUG THERAPY
     Dosage: 180 MG, BID
     Route: 065
  7. ASPIRIN [Concomitant]
     Indication: CORONARY ARTERY DISEASE
     Dosage: UNK
     Route: 065
  8. BISOPROLOL [Concomitant]
     Indication: HYPERTENSION
     Dosage: UNK
     Route: 065
  9. GLIMEPIRIDE [Concomitant]
     Indication: TYPE 2 DIABETES MELLITUS
     Dosage: UNK
     Route: 065
  10. METFORMIN [Concomitant]
     Indication: TYPE 2 DIABETES MELLITUS
     Dosage: UNK
     Route: 065
  11. ATORVASTATIN [Concomitant]
     Indication: CORONARY ARTERY DISEASE
     Dosage: UNK
     Route: 065
  12. GANCICLOVIR [Concomitant]
     Indication: CYTOMEGALOVIRUS INFECTION
     Dosage: UNK
     Route: 065
  13. AMPICILLIN-SULBACTAM [Concomitant]
     Indication: CYTOMEGALOVIRUS INFECTION
     Dosage: UNK
     Route: 065
  14. IMIPENEM-CILASTATIN [Concomitant]
     Indication: BACTERAEMIA
     Dosage: UNK
     Route: 065
  15. COLISTIN [Concomitant]
     Indication: BACTERAEMIA
     Dosage: UNK
     Route: 065
  16. TRIMETHOPRIM-SULFAMETHOXAZOLE [Concomitant]
     Indication: BRUCELLOSIS
     Dosage: UNK
     Route: 065

REACTIONS (3)
  - Renal failure acute [Recovering/Resolving]
  - Drug level increased [Recovering/Resolving]
  - Drug interaction [Recovering/Resolving]
